FAERS Safety Report 6814775-5 (Version None)
Quarter: 2010Q3

REPORT INFORMATION
  Report Type: 
  Country: None (occurrence: None)
  Receive Date: 20100702
  Receipt Date: 20100625
  Transmission Date: 20110219
  Serious: Yes (Hospitalization)
  Sender: FDA-Public Use
  Company Number: A0812055A

PATIENT
  Sex: Female
  Weight: 48 kg

DRUGS (6)
  1. LAPATINIB [Suspect]
     Indication: BREAST CANCER
     Dosage: 1500MG PER DAY
     Route: 048
     Dates: start: 20090922
  2. PACLITAXEL [Suspect]
     Indication: BREAST CANCER
     Dosage: 80MGM2 WEEKLY
     Route: 042
     Dates: start: 20090921
  3. ENALAPRIL MALEATE [Concomitant]
     Dosage: 10MG PER DAY
     Route: 048
  4. PROPRANOLOL [Concomitant]
     Route: 048
     Dates: end: 20091014
  5. VERAPAMIL [Concomitant]
     Dosage: 120MG TWICE PER DAY
     Route: 048
     Dates: start: 20091101
  6. TRASTUZUMAB [Concomitant]
     Dates: start: 20100503

REACTIONS (5)
  - CHEST PAIN [None]
  - DIZZINESS [None]
  - DYSPNOEA [None]
  - HEADACHE [None]
  - PALPITATIONS [None]
